FAERS Safety Report 20098407 (Version 2)
Quarter: 2022Q1

REPORT INFORMATION
  Report Type: Spontaneous
  Country: IT (occurrence: IT)
  Receive Date: 20211122
  Receipt Date: 20220128
  Transmission Date: 20220423
  Serious: Yes (Other)
  Sender: FDA-Public Use
  Company Number: IT-002147023-NVSC2021IT205219

PATIENT

DRUGS (3)
  1. GEMCITABINE [Suspect]
     Active Substance: GEMCITABINE
     Indication: Pleural mesothelioma malignant
     Dosage: 100 MILLIGRAM/SQ. METER
     Route: 042
  2. GEMCITABINE [Suspect]
     Active Substance: GEMCITABINE
     Dosage: 1000 MILLIGRAM/SQ. METER, CYCLE (ON DAYS 1 AND 8 EVERY 3 WEEKS)
     Route: 042
  3. RAMUCIRUMAB [Suspect]
     Active Substance: RAMUCIRUMAB
     Indication: Pleural mesothelioma malignant
     Dosage: 10 MILLIGRAM/KILOGRAM, CYCLE (ON DAY 1 OF A 3 WEEK CYCLE  )
     Route: 042

REACTIONS (2)
  - Embolism [Unknown]
  - Product use in unapproved indication [Unknown]
